FAERS Safety Report 8377002-6 (Version None)
Quarter: 2012Q2

REPORT INFORMATION
  Report Type: 
  Country: None (occurrence: None)
  Receive Date: 20120522
  Receipt Date: 20120504
  Transmission Date: 20120825
  Serious: No
  Sender: FDA-Public Use
  Company Number: US-ASTRAZENECA-2012SE29155

PATIENT
  Age: 76 Year
  Sex: Female
  Weight: 57.6 kg

DRUGS (2)
  1. SEROQUEL [Suspect]
     Indication: DEPRESSION
     Dosage: 50 MG, 25 MG IN THE MORNING, 25 MG AT THE NIGHT
     Route: 048
     Dates: start: 20120309
  2. LAMOTRIGINE [Concomitant]
     Indication: DEPRESSION

REACTIONS (17)
  - OFF LABEL USE [None]
  - AMNESIA [None]
  - DEPRESSED MOOD [None]
  - DRY SKIN [None]
  - BLADDER PROLAPSE [None]
  - ERYTHEMA OF EYELID [None]
  - DRY MOUTH [None]
  - FALL [None]
  - POLYURIA [None]
  - WEIGHT DECREASED [None]
  - ANXIETY [None]
  - ARTHRITIS [None]
  - PSYCHIATRIC SYMPTOM [None]
  - DYSGEUSIA [None]
  - SKIN WRINKLING [None]
  - MUSCULAR WEAKNESS [None]
  - IRRITABILITY [None]
